FAERS Safety Report 8380225-3 (Version None)
Quarter: 2012Q2

REPORT INFORMATION
  Report Type: 
  Country: None (occurrence: None)
  Receive Date: 20120523
  Receipt Date: 20120518
  Transmission Date: 20120825
  Serious: Yes (Other)
  Sender: FDA-Public Use
  Company Number: PHEH2012US010552

PATIENT
  Sex: Female

DRUGS (5)
  1. BUPROPION HCL [Concomitant]
  2. GILENYA [Suspect]
     Indication: MULTIPLE SCLEROSIS
     Dosage: 0.5 MG, QD
     Route: 048
     Dates: start: 20111001
  3. GABAPENTIN [Concomitant]
  4. PREMPRO [Concomitant]
  5. MULTI-VITAMINS [Concomitant]

REACTIONS (3)
  - GAIT DISTURBANCE [None]
  - HYPOAESTHESIA [None]
  - DEPRESSION [None]
